FAERS Safety Report 7388361-5 (Version None)
Quarter: 2011Q2

REPORT INFORMATION
  Report Type: 
  Country: None (occurrence: None)
  Receive Date: 20110401
  Receipt Date: 20110329
  Transmission Date: 20111010
  Serious: No
  Sender: FDA-Public Use
  Company Number: US-BAYER-2011-027387

PATIENT
  Sex: Female

DRUGS (2)
  1. AVELOX [Suspect]
     Indication: SINUSITIS
     Dosage: 400 MG ONCE A DAY FOR 7DAYS
     Route: 002
     Dates: start: 20110104
  2. AVELOX [Suspect]
     Dosage: DAILY DOSE 400 MG
     Dates: end: 20110111

REACTIONS (1)
  - SINUSITIS [None]
